FAERS Safety Report 8444183-5 (Version None)
Quarter: 2012Q2

REPORT INFORMATION
  Report Type: 
  Country: None (occurrence: None)
  Receive Date: 20120611
  Receipt Date: 20120516
  Transmission Date: 20120825
  Serious: Yes (Other)
  Sender: FDA-Public Use
  Company Number: 001241241A

PATIENT
  Age: 13 Year
  Sex: Female

DRUGS (5)
  1. EPIPEN [Concomitant]
  2. AVEENO CREAM [Concomitant]
  3. EUCERIN [Concomitant]
  4. PROACTIVE REPAIRING TREATMENT [Suspect]
     Indication: ACNE
     Dosage: ONCE DERMAL
     Route: 061
     Dates: start: 20120410
  5. PROACTIVE CLEANSER [Suspect]
     Indication: ACNE
     Dosage: ONCE DERMAL
     Route: 061
     Dates: start: 20120410

REACTIONS (3)
  - PRURITUS [None]
  - LOCAL SWELLING [None]
  - SWELLING FACE [None]
